FAERS Safety Report 4614336-2 (Version None)
Quarter: 2005Q1

REPORT INFORMATION
  Report Type: 
  Country: None (occurrence: None)
  Receive Date: 20050308
  Receipt Date: 20041110
  Transmission Date: 20050727
  Serious: Yes (Other)
  Sender: FDA-Public Use
  Company Number: 2004UW23216

PATIENT
  Age: 66 Year
  Sex: Female

DRUGS (8)
  1. CRESTOR [Suspect]
     Indication: HYPERCHOLESTEROLAEMIA
     Dosage: 9 MG DAILY PO
     Route: 048
     Dates: start: 20041101, end: 20041101
  2. CRESTOR [Suspect]
     Indication: HYPERCHOLESTEROLAEMIA
     Dosage: 10 MG PO
     Route: 048
     Dates: start: 20041109
  3. TRIAMT [Concomitant]
  4. ALLOPURINOL [Concomitant]
  5. L-THYROXINE [Concomitant]
  6. OMEPRAZOLE [Concomitant]
  7. FLONASE [Concomitant]
  8. HYDROXYZINE [Concomitant]

REACTIONS (2)
  - FEELING ABNORMAL [None]
  - PARAESTHESIA [None]
